FAERS Safety Report 11179746 (Version 1)
Quarter: 2015Q2

REPORT INFORMATION
  Report Type: Spontaneous
  Country: US (occurrence: None)
  Receive Date: 20150609
  Receipt Date: 20150609
  Transmission Date: 20150821
  Serious: No
  Sender: FDA-Public Use
  Company Number: None

PATIENT
  Age: 43 Year
  Sex: Female
  Weight: 72.58 kg

DRUGS (1)
  1. IBUPROFEN. [Suspect]
     Active Substance: IBUPROFEN
     Indication: ARTHRALGIA
     Dosage: 4 PILLS
     Route: 048
     Dates: start: 20150529, end: 20150529

REACTIONS (2)
  - Chromaturia [None]
  - Product commingling [None]

NARRATIVE: CASE EVENT DATE: 20150529
